FAERS Safety Report 10072256 (Version 1)
Quarter: 2014Q2

REPORT INFORMATION
  Report Type: Spontaneous
  Country: IN (occurrence: IN)
  Receive Date: 20140411
  Receipt Date: 20140411
  Transmission Date: 20141212
  Serious: Yes (Other)
  Sender: FDA-Public Use
  Company Number: IN-SUN PHARMACEUTICAL INDUSTRIES LTD-2014SUN00773

PATIENT
  Age: 45 Year
  Sex: Male

DRUGS (2)
  1. LITHIUM [Suspect]
     Indication: DEPRESSION
     Dosage: 500 MG, QD
     Route: 048
  2. LIGNOCAINE HYDROCHLORIDE/ADRENALINE BITARTRATE [Interacting]
     Indication: LOCAL ANAESTHESIA

REACTIONS (2)
  - Delayed recovery from anaesthesia [Recovered/Resolved]
  - Drug interaction [Recovered/Resolved]
